FAERS Safety Report 13355829 (Version 3)
Quarter: 2017Q2

REPORT INFORMATION
  Report Type: Report from Study
  Country: US (occurrence: US)
  Receive Date: 20170321
  Receipt Date: 20170612
  Transmission Date: 20170830
  Serious: Yes (Hospitalization)
  Sender: FDA-Public Use
  Company Number: US-EXELIXIS-CABO-17008571

PATIENT
  Sex: Male
  Weight: 55.33 kg

DRUGS (6)
  1. CABOMETYX [Suspect]
     Active Substance: CABOZANTINIB S-MALATE
     Indication: METASTASES TO LUNG
  2. MEGACE [Concomitant]
     Active Substance: MEGESTROL ACETATE
  3. VOTRIENT [Concomitant]
     Active Substance: PAZOPANIB HYDROCHLORIDE
  4. CABOMETYX [Suspect]
     Active Substance: CABOZANTINIB S-MALATE
     Indication: RENAL CANCER
     Dosage: 60 MG, QD
     Route: 048
     Dates: start: 20170207, end: 20170222
  5. VIREAD [Concomitant]
     Active Substance: TENOFOVIR DISOPROXIL FUMARATE
  6. FLOMAX [Concomitant]
     Active Substance: TAMSULOSIN HYDROCHLORIDE

REACTIONS (17)
  - Drug intolerance [Unknown]
  - Leukopenia [Unknown]
  - Cough [Unknown]
  - Bone pain [Unknown]
  - Malaise [Unknown]
  - Visual impairment [Unknown]
  - Abasia [Unknown]
  - Tinnitus [Unknown]
  - Nasal obstruction [Unknown]
  - Daydreaming [Unknown]
  - Vomiting [Unknown]
  - Fatigue [Unknown]
  - Muscle contractions involuntary [Unknown]
  - Amnesia [Unknown]
  - Dizziness [Unknown]
  - Epistaxis [Unknown]
  - Headache [Not Recovered/Not Resolved]
